FAERS Safety Report 9391118 (Version 1)
Quarter: 2013Q3

REPORT INFORMATION
  Report Type: Spontaneous
  Country: IT (occurrence: IT)
  Receive Date: 20130709
  Receipt Date: 20130709
  Transmission Date: 20140515
  Serious: Yes (Hospitalization)
  Sender: FDA-Public Use
  Company Number: IT-PFIZER INC-2013199716

PATIENT
  Age: 59 Year
  Sex: Female

DRUGS (1)
  1. SUTENT [Suspect]
     Indication: RENAL CANCER RECURRENT
     Dosage: 50 MG, 1X/DAY
     Route: 048
     Dates: start: 20110902, end: 20130420

REACTIONS (2)
  - Second primary malignancy [Recovered/Resolved]
  - Endometrial adenocarcinoma [Recovered/Resolved]
